FAERS Safety Report 7735221-3 (Version None)
Quarter: 2011Q3

REPORT INFORMATION
  Report Type: 
  Country: None (occurrence: None)
  Receive Date: 20110907
  Receipt Date: 20110829
  Transmission Date: 20111222
  Serious: Yes (Hospitalization, Other)
  Sender: FDA-Public Use
  Company Number: FR-ASTRAZENECA-2011SE29528

PATIENT
  Age: 83 Year
  Sex: Female
  Weight: 51 kg

DRUGS (12)
  1. SYMBICORT [Suspect]
     Route: 055
  2. VENTOLIN [Concomitant]
     Indication: CHRONIC OBSTRUCTIVE PULMONARY DISEASE
     Dosage: AS REQUIRED
  3. PANTOPRAZOLE [Concomitant]
  4. ATORVASTATIN CALCIUM [Concomitant]
     Indication: DYSLIPIDAEMIA
  5. SPIRIVA [Concomitant]
     Indication: CHRONIC OBSTRUCTIVE PULMONARY DISEASE
  6. LASIX [Concomitant]
     Indication: HYPERTENSION
  7. PROCORALAN [Concomitant]
     Indication: ISCHAEMIC CARDIOMYOPATHY
  8. SYMBICORT [Suspect]
     Indication: CHRONIC OBSTRUCTIVE PULMONARY DISEASE
     Dosage: 320/9 UG PER DOSE 2 INHALATIONS TWICE DAILY
     Route: 055
  9. ASPIRIN [Concomitant]
     Indication: ISCHAEMIC CARDIOMYOPATHY
  10. POTASSIUM CHLORIDE [Concomitant]
  11. ATARAX [Concomitant]
  12. LEVEMIR [Concomitant]
     Indication: TYPE 2 DIABETES MELLITUS

REACTIONS (2)
  - OVERDOSE [None]
  - ELECTROCARDIOGRAM QT PROLONGED [None]
